FAERS Safety Report 7928512-4 (Version None)
Quarter: 2011Q4

REPORT INFORMATION
  Report Type: 
  Country: None (occurrence: None)
  Receive Date: 20111118
  Receipt Date: 20111108
  Transmission Date: 20120403
  Serious: Yes (Death, Hospitalization)
  Sender: FDA-Public Use
  Company Number: FR-ELI_LILLY_AND_COMPANY-FR201111002209

PATIENT
  Age: 42 Year
  Sex: Male

DRUGS (10)
  1. RISPERIDONE [Concomitant]
     Dosage: 2 MG, UNKNOWN
     Dates: end: 20110201
  2. FENOFIBRATE [Concomitant]
     Dosage: UNK, UNKNOWN
     Dates: end: 20110201
  3. CYMBALTA [Suspect]
     Indication: DEPRESSION
     Dosage: 90 MG, QD
     Route: 048
     Dates: start: 20100914, end: 20110204
  4. CELIPROLOL [Concomitant]
     Dosage: 200 MG, UNKNOWN
     Dates: end: 20110201
  5. TERCIAN [Concomitant]
     Dosage: 40 DF, UNKNOWN
     Dates: end: 20110201
  6. LANSOPRAZOLE [Concomitant]
     Dosage: 15 MG, UNKNOWN
     Dates: end: 20110201
  7. JANUMET [Concomitant]
     Dosage: UNK, UNKNOWN
     Dates: end: 20110201
  8. METFORMIN HCL [Concomitant]
     Dosage: 850 MG, UNKNOWN
     Dates: end: 20110201
  9. NOCTRAN 10 [Concomitant]
     Dosage: UNK, UNKNOWN
     Dates: end: 20110201
  10. AMLODIPINE BESYLATE AND OLMESARTAN MEDOXOMIL [Concomitant]
     Dosage: UNK, UNKNOWN
     Dates: end: 20110201

REACTIONS (5)
  - POISONING DELIBERATE [None]
  - COMPLETED SUICIDE [None]
  - DELIRIUM [None]
  - HYPOMANIA [None]
  - AGGRESSION [None]
